FAERS Safety Report 8440214-7 (Version None)
Quarter: 2012Q2

REPORT INFORMATION
  Report Type: 
  Country: None (occurrence: None)
  Receive Date: 20120615
  Receipt Date: 20120612
  Transmission Date: 20120825
  Serious: No
  Sender: FDA-Public Use
  Company Number: US-PFIZER INC-2012131467

PATIENT
  Sex: Male
  Weight: 90.703 kg

DRUGS (4)
  1. LISINOPRIL [Concomitant]
     Indication: HYPERTENSION
     Dosage: 5 MG, 2X/DAY
     Dates: start: 19970101
  2. NEURONTIN [Suspect]
     Indication: PARAESTHESIA
     Dosage: 2X100 MG, 2X/DAY
     Route: 048
     Dates: start: 20110601, end: 20110601
  3. VYTORIN [Suspect]
     Indication: BLOOD CHOLESTEROL INCREASED
     Dosage: 10/20 MG, DAILY
     Dates: start: 20101201
  4. COREG [Concomitant]
     Indication: HYPERTENSION
     Dosage: 12.5 MG, 2X/DAY

REACTIONS (2)
  - SOMNOLENCE [None]
  - MUSCLE SPASMS [None]
